FAERS Safety Report 13449583 (Version 2)
Quarter: 2017Q2

REPORT INFORMATION
  Report Type: Other
  Country: CA (occurrence: CA)
  Receive Date: 20170417
  Receipt Date: 20170518
  Transmission Date: 20170830
  Serious: Yes (Death, Other)
  Sender: FDA-Public Use
  Company Number: CA-APOTEX-2017AP009939

PATIENT

DRUGS (1)
  1. APO-FENTANYL MATRIX [Suspect]
     Active Substance: FENTANYL
     Indication: PRODUCT USED FOR UNKNOWN INDICATION
     Dosage: UNK
     Route: 062

REACTIONS (3)
  - Product adhesion issue [Fatal]
  - Underdose [Fatal]
  - Death [Fatal]
